FAERS Safety Report 14407601 (Version 1)
Quarter: 2018Q1

REPORT INFORMATION
  Report Type: Spontaneous
  Country: US (occurrence: US)
  Receive Date: 20180116
  Receipt Date: 20180116
  Transmission Date: 20180509
  Serious: No
  Sender: FDA-Public Use
  Company Number: None

PATIENT
  Age: 69 Year
  Sex: Female
  Weight: 77.4 kg

DRUGS (16)
  1. VALACYCLORIV [Concomitant]
  2. FISH OIL [Concomitant]
     Active Substance: FISH OIL
  3. IRBEDARTAN [Concomitant]
  4. SERTRALINE [Concomitant]
     Active Substance: SERTRALINE HYDROCHLORIDE
  5. ATORVASTATIN [Concomitant]
     Active Substance: ATORVASTATIN
  6. BRISDELL [Concomitant]
  7. MULTI VITAMIN [Concomitant]
     Active Substance: VITAMINS
  8. SUPER B VITAMIN [Concomitant]
  9. UCERIS [Suspect]
     Active Substance: BUDESONIDE
     Indication: COLITIS MICROSCOPIC
     Dosage: ?          QUANTITY:1 TABLET(S);?
     Route: 048
  10. TUMERIC [Concomitant]
     Active Substance: HERBALS\TURMERIC
  11. CALCIUM [Concomitant]
     Active Substance: CALCIUM
  12. TART CHERRY [Concomitant]
  13. VITAMIN D [Concomitant]
     Active Substance: CHOLECALCIFEROL
  14. CINNAMON. [Concomitant]
     Active Substance: CINNAMON
  15. HCTZ [Concomitant]
     Active Substance: HYDROCHLOROTHIAZIDE
  16. ADENDRONATE [Concomitant]

REACTIONS (3)
  - Paraesthesia [None]
  - Pain in extremity [None]
  - Arthralgia [None]

NARRATIVE: CASE EVENT DATE: 20180116
